FAERS Safety Report 4431826-6 (Version None)
Quarter: 2004Q3

REPORT INFORMATION
  Report Type: 
  Country: None (occurrence: None)
  Receive Date: 20040819
  Receipt Date: 20040723
  Transmission Date: 20050211
  Serious: Yes (Life-Threatening)
  Sender: FDA-Public Use
  Company Number: 50724

PATIENT
  Age: 68 Year
  Sex: Male

DRUGS (2)
  1. URION UNO 10 MG [Suspect]
     Indication: BENIGN PROSTATIC HYPERPLASIA
     Dosage: 1 TIME(S) PER DAY, 10 MG; ORAL (INTRAGASTRAL)
     Route: 048
     Dates: start: 20040130, end: 20040131
  2. BAZOTON(URTICA EXTRACT) [Concomitant]

REACTIONS (1)
  - CIRCULATORY COLLAPSE [None]
